FAERS Safety Report 4439642-6 (Version None)
Quarter: 2004Q3

REPORT INFORMATION
  Report Type: 
  Country: None (occurrence: None)
  Receive Date: 20040831
  Receipt Date: 20040831
  Transmission Date: 20050211
  Serious: No
  Sender: FDA-Public Use
  Company Number: None

PATIENT
  Age: 63 Year
  Sex: Male

DRUGS (7)
  1. VERAPAMIL [Suspect]
     Indication: ANGINA PECTORIS
     Dosage: 180 MG DAILY ORAL
     Route: 048
     Dates: start: 20040427, end: 20040727
  2. VERAPAMIL [Suspect]
     Indication: HYPERTENSION
     Dosage: 180 MG DAILY ORAL
     Route: 048
     Dates: start: 20040427, end: 20040727
  3. ATENOLOL [Concomitant]
  4. FUROSEMIDE [Concomitant]
  5. ASPIRIN [Concomitant]
  6. INSULIN [Concomitant]
  7. OXYBUTYNIN CHLORIDE [Concomitant]

REACTIONS (1)
  - RASH [None]
